FAERS Safety Report 10638972 (Version 1)
Quarter: 2014Q4

REPORT INFORMATION
  Report Type: Spontaneous
  Country: US (occurrence: None)
  Receive Date: 20141121
  Receipt Date: 20141121
  Transmission Date: 20150529
  Serious: No
  Sender: FDA-Public Use
  Company Number: 163-10004-14070125

PATIENT
  Age: 68 Year
  Sex: Female

DRUGS (16)
  1. NAFTIN (NAFTIPFINE HYDROCHLORIDE) [Concomitant]
  2. SALICYLIC ACID (SALICYLIC ACID) [Concomitant]
  3. ALDENDRONATE SODIUM (ALENDRONATE SODIUM) [Concomitant]
  4. LIPITOR (ATOVASTATIN) [Concomitant]
  5. LOCOID LIPOCREAM (HYPEROCORTISONE BUTYRATE) [Concomitant]
  6. METHOTREXATE SODIUM (METHOTREXATE SODIUM) [Concomitant]
     Active Substance: METHOTREXATE SODIUM
  7. FOLIC ACID (FOLIC ACID) [Concomitant]
     Active Substance: FOLIC ACID
  8. CRESTOR (TOSUVASTATIN) [Concomitant]
  9. MELOXICAM (MELOXICAM) [Concomitant]
     Active Substance: MELOXICAM
  10. FINACEA [Concomitant]
     Active Substance: AZELAIC ACID
  11. MONTELUKAST SODIUM (MONTELUKAST SODIUM) [Concomitant]
     Active Substance: MONTELUKAST SODIUM
  12. CYMBALTA [Concomitant]
     Active Substance: DULOXETINE HYDROCHLORIDE
  13. LEVOTHROID (LEVOTHYROXINE SODIUM) [Concomitant]
  14. OTEZLA [Suspect]
     Active Substance: APREMILAST
     Indication: PSORIATIC ARTHROPATHY
     Route: 048
     Dates: start: 20140618
  15. ASPIRIN. [Concomitant]
     Active Substance: ASPIRIN
  16. ZEGERID (OMEPRAZOLE) [Concomitant]

REACTIONS (2)
  - Pain [None]
  - Diarrhoea [None]

NARRATIVE: CASE EVENT DATE: 20140620
